FAERS Safety Report 5262717-9 (Version None)
Quarter: 2007Q1

REPORT INFORMATION
  Report Type: 
  Country: None (occurrence: None)
  Receive Date: 20061208
  Receipt Date: 20060913
  Transmission Date: 20070707
  Serious: Yes (Other)
  Sender: FDA-Public Use
  Company Number: USA-2006-0025200

PATIENT
  Sex: Male

DRUGS (1)
  1. OXYCONTIN [Suspect]
     Indication: DRUG USE FOR UNKNOWN INDICATION
     Dosage: 160 MG, SEE TEXT, ORAL
     Route: 048
     Dates: start: 20060912

REACTIONS (1)
  - DRUG ABUSER [None]
